FAERS Safety Report 4798295-8 (Version None)
Quarter: 2005Q4

REPORT INFORMATION
  Report Type: 
  Country: None (occurrence: None)
  Receive Date: 20051006
  Receipt Date: 20051006
  Transmission Date: 20060501
  Serious: Yes (Life-Threatening, Hospitalization)
  Sender: FDA-Public Use
  Company Number: None

PATIENT
  Age: 82 Year
  Sex: Male
  Weight: 52 kg

DRUGS (2)
  1. LIDOCAINE [Suspect]
     Indication: LOCAL ANAESTHESIA
     Dosage: 5ML  INJ  X 2 DOSES
     Route: 042
     Dates: start: 20050131
  2. LIDOCAINE [Suspect]
     Indication: LOCAL ANAESTHESIA
     Dosage: 5ML  INJ  X 2 DOSES
     Route: 042
     Dates: start: 20050202

REACTIONS (5)
  - DRUG TOXICITY [None]
  - HYPOTENSION [None]
  - MENTAL STATUS CHANGES [None]
  - METHAEMOGLOBINAEMIA [None]
  - OXYGEN SATURATION DECREASED [None]
